FAERS Safety Report 4808211-8 (Version None)
Quarter: 2005Q4

REPORT INFORMATION
  Report Type: 
  Country: None (occurrence: None)
  Receive Date: 20051021
  Receipt Date: 20051011
  Transmission Date: 20060501
  Serious: Yes (Other)
  Sender: FDA-Public Use
  Company Number: 2005141892

PATIENT
  Age: 45 Year
  Sex: Female

DRUGS (3)
  1. GENOTROPIN [Suspect]
     Indication: OFF LABEL USE
     Dosage: 0.4 MG (5.3 MG, DAILY)
     Dates: start: 20050701
  2. ESTREVA (ESTRADIOL) [Concomitant]
  3. DESOBESI-M (FENPROPOREX HYDROCHLORIDE) [Concomitant]

REACTIONS (3)
  - ALOPECIA [None]
  - HYPERTHYROIDISM [None]
  - OEDEMA PERIPHERAL [None]
